FAERS Safety Report 11108868 (Version 1)
Quarter: 2015Q2

REPORT INFORMATION
  Report Type: Spontaneous
  Country: US (occurrence: None)
  Receive Date: 20150511
  Receipt Date: 20150511
  Transmission Date: 20150821
  Serious: Yes (Hospitalization)
  Sender: FDA-Public Use
  Company Number: 1601961

PATIENT
  Age: 48 Year
  Sex: Female

DRUGS (5)
  1. QUETIAPINE [Concomitant]
     Active Substance: QUETIAPINE
  2. BENAZAEPRIL [Concomitant]
  3. LITHIUM. [Suspect]
     Active Substance: LITHIUM
     Indication: MANIA
     Route: 048
  4. LITHIUM. [Concomitant]
     Active Substance: LITHIUM
  5. LACTULOSE (NON-SPECIFIC) [Suspect]
     Active Substance: LACTULOSE
     Indication: CONSTIPATION
     Dosage: X 5 DOSES

REACTIONS (4)
  - Tremor [None]
  - Somnolence [None]
  - Constipation [None]
  - Toxicity to various agents [None]
